FAERS Safety Report 6081838-4 (Version None)
Quarter: 2009Q1

REPORT INFORMATION
  Report Type: 
  Country: None (occurrence: None)
  Receive Date: 20090218
  Receipt Date: 20080506
  Transmission Date: 20090719
  Serious: No
  Sender: FDA-Public Use
  Company Number: US-BRISTOL-MYERS SQUIBB COMPANY-14114722

PATIENT
  Age: 66 Year
  Sex: Male

DRUGS (5)
  1. GLUCOPHAGE [Suspect]
     Indication: HYPERGLYCAEMIA
     Route: 048
  2. AVANDIA [Concomitant]
  3. METOPROLOL TARTRATE [Concomitant]
  4. GLIPIZIDE [Concomitant]
  5. ADVIL LIQUI-GELS [Concomitant]

REACTIONS (1)
  - BLOOD CREATININE INCREASED [None]
